FAERS Safety Report 8974848 (Version 1)
Quarter: 2012Q4

REPORT INFORMATION
  Report Type: 
  Country: CN (occurrence: CN)
  Receive Date: 20121219
  Receipt Date: 20121219
  Transmission Date: 20130627
  Serious: Yes (Hospitalization)
  Sender: FDA-Public Use
  Company Number: PHHY2012CN109542

PATIENT
  Age: 43 Year
  Sex: Male

DRUGS (1)
  1. TEGRETOL [Suspect]
     Indication: TRIGEMINAL NEURALGIA
     Dosage: 100 mg, BID
     Route: 048
     Dates: start: 20100310, end: 20100323

REACTIONS (16)
  - Rash pustular [Recovering/Resolving]
  - Oropharyngeal pain [Recovering/Resolving]
  - Odynophagia [Recovering/Resolving]
  - Purulent discharge [Recovering/Resolving]
  - Flushing [Recovering/Resolving]
  - Conjunctival hyperaemia [Recovering/Resolving]
  - Lip swelling [Recovering/Resolving]
  - Scar [Recovering/Resolving]
  - Oral mucosal erythema [Recovering/Resolving]
  - Salivary hypersecretion [Recovering/Resolving]
  - Skin erosion [Recovering/Resolving]
  - Oedema mucosal [Recovering/Resolving]
  - Erythema [Recovering/Resolving]
  - Blood immunoglobulin E increased [Recovering/Resolving]
  - Roseola [Recovering/Resolving]
  - Skin discolouration [Recovering/Resolving]
